FAERS Safety Report 7986151-3 (Version None)
Quarter: 2011Q4

REPORT INFORMATION
  Report Type: 
  Country: None (occurrence: None)
  Receive Date: 20111216
  Receipt Date: 20111209
  Transmission Date: 20120403
  Serious: Yes (Other)
  Sender: FDA-Public Use
  Company Number: AU-PFIZER INC-2011303333

PATIENT
  Age: 46 Year
  Sex: Female

DRUGS (2)
  1. TRIPHASIL-21 [Suspect]
     Indication: MENSTRUATION IRREGULAR
     Route: 048
  2. TRIPHASIL-21 [Suspect]
     Indication: OFF LABEL USE

REACTIONS (1)
  - ACUTE FEBRILE NEUTROPHILIC DERMATOSIS [None]
